FAERS Safety Report 7557178-0 (Version None)
Quarter: 2011Q2

REPORT INFORMATION
  Report Type: 
  Country: None (occurrence: None)
  Receive Date: 20110620
  Receipt Date: 20110615
  Transmission Date: 20111010
  Serious: Yes (Death, Other)
  Sender: FDA-Public Use
  Company Number: US-GENZYME-MOZO-1000505

PATIENT
  Age: 76 Year
  Sex: Male

DRUGS (2)
  1. CLOLAR [Suspect]
     Indication: ACUTE MYELOID LEUKAEMIA
     Route: 065
  2. MOZOBIL [Suspect]
     Indication: ACUTE MYELOID LEUKAEMIA
     Dosage: 240 MCG/KG, QD
     Route: 058

REACTIONS (4)
  - OEDEMA [None]
  - ACUTE MYELOID LEUKAEMIA [None]
  - PYREXIA [None]
  - PANCYTOPENIA [None]
